FAERS Safety Report 7574623-5 (Version None)
Quarter: 2011Q2

REPORT INFORMATION
  Report Type: 
  Country: None (occurrence: None)
  Receive Date: 20110627
  Receipt Date: 20110622
  Transmission Date: 20111010
  Serious: Yes (Death, Hospitalization, Other)
  Sender: FDA-Public Use
  Company Number: US-CEPHALON-2011003261

PATIENT
  Sex: Male

DRUGS (1)
  1. TREANDA [Suspect]
     Indication: CHRONIC LYMPHOCYTIC LEUKAEMIA
     Route: 042
     Dates: start: 20091118, end: 20091118

REACTIONS (3)
  - METASTASES TO CENTRAL NERVOUS SYSTEM [None]
  - STEVENS-JOHNSON SYNDROME [None]
  - GASTROINTESTINAL PAIN [None]
